FAERS Safety Report 17239507 (Version 2)
Quarter: 2020Q1

REPORT INFORMATION
  Report Type: Report from Study
  Country: US (occurrence: US)
  Receive Date: 20200106
  Receipt Date: 20200111
  Transmission Date: 20200409
  Serious: Yes (Death, Hospitalization)
  Sender: FDA-Public Use
  Company Number: US-HLSUS-2020-US-000013

PATIENT
  Age: 67 Year
  Sex: Male

DRUGS (6)
  1. VALPROATE [Concomitant]
     Active Substance: VALPROIC ACID
     Dosage: THREE TIMES A DAY
  2. CLOZAPINE. [Suspect]
     Active Substance: CLOZAPINE
     Dosage: TITRATED UP TO 75MG TWICE A DAY
     Dates: start: 2019, end: 201907
  3. OLANZAPINE. [Concomitant]
     Active Substance: OLANZAPINE
     Dosage: AT NIGHT
  4. BENZTROPINE. [Concomitant]
     Active Substance: BENZTROPINE
     Dosage: AT NIGHT
  5. ZOLPIDEM [Concomitant]
     Active Substance: ZOLPIDEM TARTRATE
  6. DIVALPROEX [Concomitant]
     Active Substance: DIVALPROEX SODIUM
     Dosage: TWICE A DAY

REACTIONS (10)
  - Ventricular tachycardia [Recovered/Resolved]
  - Psychotic disorder [Unknown]
  - Sepsis [Recovered/Resolved]
  - Death [Fatal]
  - Delusional perception [Unknown]
  - Pneumonia [Recovered/Resolved]
  - Dysphagia [Recovered/Resolved]
  - Agitation [Unknown]
  - Pneumonia [Recovered/Resolved]
  - Acute respiratory failure [Recovered/Resolved]

NARRATIVE: CASE EVENT DATE: 201907
